FAERS Safety Report 6110372-8 (Version None)
Quarter: 2009Q1

REPORT INFORMATION
  Report Type: 
  Country: None (occurrence: None)
  Receive Date: 20090310
  Receipt Date: 20090302
  Transmission Date: 20090719
  Serious: Yes (Hospitalization)
  Sender: FDA-Public Use
  Company Number: FR-PFIZER INC-2007103129

PATIENT

DRUGS (6)
  1. MARAVIROC [Suspect]
     Indication: HIV INFECTION
     Dosage: 150 MG, 2X/DAY
     Route: 048
     Dates: start: 20070618
  2. TENORMIN [Concomitant]
     Route: 048
     Dates: start: 20070819
  3. TRIATEC [Concomitant]
     Route: 048
     Dates: start: 20070819
  4. CRESTOR [Concomitant]
     Route: 048
     Dates: start: 20070819
  5. PLAVIX [Concomitant]
     Route: 048
     Dates: start: 20070819
  6. ASPIRIN [Concomitant]
     Route: 048
     Dates: start: 20070819

REACTIONS (2)
  - PALPITATIONS [None]
  - PARAESTHESIA [None]
